FAERS Safety Report 21124073 (Version 1)
Quarter: 2022Q3

REPORT INFORMATION
  Report Type: Other
  Country: RO (occurrence: RO)
  Receive Date: 20220725
  Receipt Date: 20220725
  Transmission Date: 20221027
  Serious: Yes (Other)
  Sender: FDA-Public Use
  Company Number: RO-CELLTRION INC.-2022RO011461

PATIENT

DRUGS (8)
  1. INFLIXIMAB [Suspect]
     Active Substance: INFLIXIMAB
     Indication: Product used for unknown indication
  2. ADALIMUMAB [Suspect]
     Active Substance: ADALIMUMAB
     Indication: Product used for unknown indication
     Route: 065
     Dates: start: 202011, end: 202103
  3. CORTICOSTEROID NOS [Concomitant]
     Active Substance: CORTICOSTEROID NOS
     Indication: Product used for unknown indication
     Route: 042
     Dates: start: 202103
  4. TOFACITINIB CITRATE [Concomitant]
     Active Substance: TOFACITINIB CITRATE
     Indication: Product used for unknown indication
     Dosage: UNK, QD
  5. TOFACITINIB CITRATE [Concomitant]
     Active Substance: TOFACITINIB CITRATE
     Dosage: 10 MILLIGRAM, DAILY
     Dates: start: 202110, end: 202205
  6. TOFACITINIB CITRATE [Concomitant]
     Active Substance: TOFACITINIB CITRATE
     Dosage: 5 MILLIGRAM
     Dates: start: 202110, end: 202110
  7. TOFACITINIB CITRATE [Concomitant]
     Active Substance: TOFACITINIB CITRATE
     Dosage: 10 MILLIGRAM, 16 WEEK
  8. ETROLIZUMAB [Concomitant]
     Active Substance: ETROLIZUMAB
     Indication: Product used for unknown indication
     Dates: start: 2019

REACTIONS (7)
  - Rectal haemorrhage [Recovered/Resolved]
  - Diarrhoea haemorrhagic [Unknown]
  - Diarrhoea haemorrhagic [Recovered/Resolved]
  - Weight decreased [Recovered/Resolved]
  - Frequent bowel movements [Recovered/Resolved]
  - Condition aggravated [Unknown]
  - Loss of therapeutic response [Recovered/Resolved]

NARRATIVE: CASE EVENT DATE: 20210601
